FAERS Safety Report 6749591 (Version 7)
Quarter: 2013Q1

REPORT INFORMATION
  Report Type: Spontaneous
  Country: NL (occurrence: None)
  Receive Date: 20080825
  Receipt Date: 20130305
  Transmission Date: 20140127
  Serious: Yes (Death, Hospitalization)
  Sender: FDA-Public Use
  Company Number: POMP-1000287

PATIENT
  Age: 77 Year
  Sex: Male
  Weight: 71 kg

DRUGS (1)
  1. MYOZYME [Suspect]
     Indication: GLYCOGEN STORAGE DISEASE TYPE II
     Dosage: 20 MG/KG, Q2W, INTRAVENOUS
     Route: 042
     Dates: start: 20070222

REACTIONS (21)
  - Drug dose omission [None]
  - Cyanosis [None]
  - Sinus bradycardia [None]
  - Hypotension [None]
  - Corynebacterium infection [None]
  - Culture wound positive [None]
  - Impaired healing [None]
  - Pruritus [None]
  - Respiratory failure [None]
  - Myocardial infarction [None]
  - Osteomyelitis [None]
  - Cardio-respiratory arrest [None]
  - Cardiac failure [None]
  - Skin ulcer [None]
  - C-reactive protein increased [None]
  - Leukocytosis [None]
  - Sepsis [None]
  - Decubitus ulcer [None]
  - Refusal of treatment by patient [None]
  - Skin disorder [None]
  - Skin necrosis [None]
